FAERS Safety Report 6263763-9 (Version None)
Quarter: 2009Q3

REPORT INFORMATION
  Report Type: 
  Country: None (occurrence: None)
  Receive Date: 20090710
  Receipt Date: 20090703
  Transmission Date: 20100115
  Serious: Yes (Hospitalization)
  Sender: FDA-Public Use
  Company Number: PHHY2009JP16266

PATIENT
  Sex: Male
  Weight: 6.7 kg

DRUGS (3)
  1. ZADITEN [Suspect]
     Indication: URTICARIA
     Dosage: UNK
     Route: 048
     Dates: start: 20090410, end: 20090424
  2. ZADITEN [Suspect]
     Indication: ECZEMA
  3. ACETAMINOPHEN [Concomitant]

REACTIONS (11)
  - AGRANULOCYTOSIS [None]
  - C-REACTIVE PROTEIN INCREASED [None]
  - FATIGUE [None]
  - HAEMOPHILUS INFECTION [None]
  - LUNG INFILTRATION [None]
  - MOOD ALTERED [None]
  - NASOPHARYNGITIS [None]
  - NEUTROPHIL COUNT DECREASED [None]
  - PNEUMONIA [None]
  - PYREXIA [None]
  - STAPHYLOCOCCAL INFECTION [None]
